FAERS Safety Report 6473828-4 (Version None)
Quarter: 2009Q4

REPORT INFORMATION
  Report Type: 
  Country: None (occurrence: None)
  Receive Date: 20091204
  Receipt Date: 20091125
  Transmission Date: 20100525
  Serious: Yes (Death, Hospitalization, Other)
  Sender: FDA-Public Use
  Company Number: US-BAYER-200935800NA

PATIENT
  Age: 55 Year
  Sex: Female

DRUGS (9)
  1. NEXAVAR [Suspect]
     Indication: HEPATIC CANCER METASTATIC
     Route: 048
     Dates: start: 20090909, end: 20090926
  2. ACYCLOVIR [Concomitant]
  3. NORVIR [Concomitant]
  4. REYATAZ [Concomitant]
  5. TRUVADA [Concomitant]
  6. MARINOL [Concomitant]
  7. METHADONE [Concomitant]
  8. LORTAB [Concomitant]
  9. LASIX [Concomitant]

REACTIONS (12)
  - ACTIVATED PARTIAL THROMBOPLASTIN TIME PROLONGED [None]
  - ASPARTATE AMINOTRANSFERASE INCREASED [None]
  - ASTHENIA [None]
  - BLOOD BILIRUBIN INCREASED [None]
  - CACHEXIA [None]
  - DEHYDRATION [None]
  - FAILURE TO THRIVE [None]
  - HEPATIC FAILURE [None]
  - HYPOPHAGIA [None]
  - MEDICATION ERROR [None]
  - PROTHROMBIN TIME PROLONGED [None]
  - VOMITING [None]
